FAERS Safety Report 13169137 (Version 3)
Quarter: 2017Q2

REPORT INFORMATION
  Report Type: Spontaneous
  Country: US (occurrence: US)
  Receive Date: 20170201
  Receipt Date: 20170524
  Transmission Date: 20170830
  Serious: No
  Sender: FDA-Public Use
  Company Number: US-TEVA-728607ACC

PATIENT
  Sex: Female

DRUGS (2)
  1. PROAIR HFA [Suspect]
     Active Substance: ALBUTEROL SULFATE
     Route: 065
  2. QVAR [Suspect]
     Active Substance: BECLOMETHASONE DIPROPIONATE
     Route: 065

REACTIONS (1)
  - Viral upper respiratory tract infection [Unknown]
